FAERS Safety Report 11665161 (Version 1)
Quarter: 2015Q4

REPORT INFORMATION
  Report Type: Spontaneous
  Country: US (occurrence: US)
  Receive Date: 20151027
  Receipt Date: 20151027
  Transmission Date: 20160304
  Serious: No
  Sender: FDA-Public Use
  Company Number: US-ELI_LILLY_AND_COMPANY-US200912003058

PATIENT
  Age: 67 Year
  Sex: Female

DRUGS (1)
  1. FORTEO [Suspect]
     Active Substance: TERIPARATIDE

REACTIONS (9)
  - Bradyphrenia [Unknown]
  - Abdominal pain upper [Unknown]
  - Confusional state [Unknown]
  - Nephrolithiasis [Unknown]
  - Memory impairment [Unknown]
  - Constipation [Unknown]
  - Asthenia [Unknown]
  - Abdominal discomfort [Unknown]
  - Insomnia [Unknown]
